FAERS Safety Report 8740440 (Version 3)
Quarter: 2014Q1

REPORT INFORMATION
  Report Type: Spontaneous
  Country: US (occurrence: US)
  Receive Date: 20120823
  Receipt Date: 20140303
  Transmission Date: 20141002
  Serious: No
  Sender: FDA-Public Use
  Company Number: US-009507513-1208USA005201

PATIENT
  Sex: Male

DRUGS (1)
  1. PROPECIA [Suspect]
     Indication: ANDROGENETIC ALOPECIA
     Dosage: 1 MG, QD
     Route: 048
     Dates: start: 20040116, end: 20070706

REACTIONS (12)
  - Cognitive disorder [Not Recovered/Not Resolved]
  - Limb injury [Unknown]
  - Gastrooesophageal reflux disease [Unknown]
  - Coagulopathy [Unknown]
  - Vision blurred [Unknown]
  - Musculoskeletal pain [Unknown]
  - Headache [Unknown]
  - Sexual dysfunction [Not Recovered/Not Resolved]
  - Erectile dysfunction [Unknown]
  - Genital cyst [Unknown]
  - Blood cholesterol increased [Unknown]
  - Vascular insufficiency [Unknown]
